FAERS Safety Report 8434277-2 (Version None)
Quarter: 2012Q2

REPORT INFORMATION
  Report Type: 
  Country: None (occurrence: None)
  Receive Date: 20120613
  Receipt Date: 20120604
  Transmission Date: 20120825
  Serious: Yes (Hospitalization, Other)
  Sender: FDA-Public Use
  Company Number: CA-ROCHE-GNE303057

PATIENT
  Sex: Female
  Weight: 54.559 kg

DRUGS (1)
  1. XOLAIR [Suspect]
     Indication: ASTHMA
     Dosage: 150 MG, 1/MONTH
     Route: 058
     Dates: start: 20060612

REACTIONS (7)
  - WHEEZING [None]
  - MOBILITY DECREASED [None]
  - HYPOVENTILATION [None]
  - BRONCHITIS [None]
  - SINUSITIS [None]
  - COMPLEX REGIONAL PAIN SYNDROME [None]
  - PAIN IN EXTREMITY [None]
